FAERS Safety Report 5984533-2 (Version None)
Quarter: 2008Q4

REPORT INFORMATION
  Report Type: 
  Country: None (occurrence: None)
  Receive Date: 20081208
  Receipt Date: 20080912
  Transmission Date: 20090506
  Serious: No
  Sender: FDA-Public Use
  Company Number: US-AMGEN-KDL307733

PATIENT
  Sex: Male

DRUGS (1)
  1. ENBREL [Suspect]
     Indication: PSORIATIC ARTHROPATHY
     Route: 058

REACTIONS (5)
  - BODY HEIGHT DECREASED [None]
  - JOINT ARTHROPLASTY [None]
  - JOINT STIFFNESS [None]
  - MUSCULAR WEAKNESS [None]
  - OSTEOPOROSIS [None]
